FAERS Safety Report 16342876 (Version 1)
Quarter: 2019Q2

REPORT INFORMATION
  Report Type: Other
  Country: US (occurrence: US)
  Receive Date: 20190522
  Receipt Date: 20190522
  Transmission Date: 20190711
  Serious: No
  Sender: FDA-Public Use
  Company Number: US-AMAG PHARMACEUTICALS, INC.-AMAG201901233

PATIENT
  Age: 71 Year
  Sex: Female

DRUGS (2)
  1. INTRAROSA [Suspect]
     Active Substance: PRASTERONE
     Indication: DYSPAREUNIA
  2. INTRAROSA [Suspect]
     Active Substance: PRASTERONE
     Indication: DISCOMFORT
     Route: 067
     Dates: start: 20180430

REACTIONS (3)
  - Vaginal odour [Unknown]
  - Off label use [Unknown]
  - Application site discharge [Unknown]

NARRATIVE: CASE EVENT DATE: 20180430
